FAERS Safety Report 25277940 (Version 3)
Quarter: 2025Q2

REPORT INFORMATION
  Report Type: Spontaneous
  Country: DE (occurrence: DE)
  Receive Date: 20250507
  Receipt Date: 20250612
  Transmission Date: 20250717
  Serious: Yes (Hospitalization)
  Sender: PFIZER
  Company Number: DE-MLMSERVICE-20250424-PI489908-00306-1

PATIENT
  Age: 50 Year
  Sex: Female
  Weight: 57 kg

DRUGS (2)
  1. HYDROCORTISONE SODIUM SUCCINATE [Suspect]
     Active Substance: HYDROCORTISONE SODIUM SUCCINATE
     Indication: Immunosuppressant drug therapy
     Dosage: 10 MG, 1X/DAY TAPERING OF IMMUNOSUPPRESSION
     Dates: start: 2022
  2. TACROLIMUS [Suspect]
     Active Substance: TACROLIMUS
     Indication: Immunosuppressant drug therapy
     Dosage: 0.5 MG, 1X/DAY TAPERING OF IMMUNOSUPPRESSION
     Dates: start: 2022

REACTIONS (3)
  - Epstein Barr virus positive mucocutaneous ulcer [Recovered/Resolved]
  - Intestinal perforation [Recovered/Resolved]
  - Peritonitis [Recovered/Resolved]
